FAERS Safety Report 21196723 (Version 1)
Quarter: 2022Q3

REPORT INFORMATION
  Report Type: Spontaneous
  Country: US (occurrence: None)
  Receive Date: 20220810
  Receipt Date: 20220810
  Transmission Date: 20221027
  Serious: No
  Sender: FDA-Public Use
  Company Number: None

PATIENT
  Age: 14 Year
  Sex: Female
  Weight: 86.85 kg

DRUGS (3)
  1. CONCERTA [Suspect]
     Active Substance: METHYLPHENIDATE HYDROCHLORIDE
     Indication: Attention deficit hyperactivity disorder
     Dosage: FREQUENCY : DAILY;?
     Route: 048
  2. CLONIDINE [Concomitant]
     Active Substance: CLONIDINE
     Dates: start: 20210120
  3. Methylphenidate (Ritalin) 10 mg as needed [Concomitant]
     Dates: start: 20210120

REACTIONS (1)
  - Mood altered [None]
